FAERS Safety Report 16116635 (Version 1)
Quarter: 2019Q1

REPORT INFORMATION
  Report Type: Report from Study
  Country: None (occurrence: GR)
  Receive Date: 20190326
  Receipt Date: 20190326
  Transmission Date: 20190418
  Serious: Yes (Hospitalization)
  Sender: FDA-Public Use
  Company Number: GR-ABBVIE-19S-066-2712687-00

PATIENT
  Age: 60 Year
  Sex: Male
  Weight: 100 kg

DRUGS (9)
  1. DUODOPA [Suspect]
     Active Substance: CARBIDOPA\LEVODOPA
     Dosage: MORNING DOSE:7.0ML; CONTINUOUS RATE:4.0ML/H; EXTRA DOSE:1.2ML
     Route: 050
     Dates: start: 20190318, end: 20190319
  2. DUODOPA [Suspect]
     Active Substance: CARBIDOPA\LEVODOPA
     Dosage: MORNING DOSE:7.5ML; CONTINUOUS RATE:5.0ML/H; EXTRA DOSE:2.5ML
     Route: 050
     Dates: start: 20190319
  3. MIRAPEXIN [Concomitant]
     Active Substance: PRAMIPEXOLE
     Indication: PARKINSON^S DISEASE
     Route: 048
  4. MIRAPEXIN [Concomitant]
     Active Substance: PRAMIPEXOLE
     Route: 048
  5. DUODOPA [Suspect]
     Active Substance: CARBIDOPA\LEVODOPA
     Indication: PARKINSON^S DISEASE
     Dosage: MORNING DOSE:7.5ML; CONTINUOUS RATE:2.4ML/H; EXTRA DOSE:1.2ML
     Route: 050
     Dates: start: 20150531, end: 20190318
  6. MADOPAR [Concomitant]
     Active Substance: BENSERAZIDE HYDROCHLORIDE\LEVODOPA
     Indication: PARKINSON^S DISEASE
     Route: 048
     Dates: start: 201809
  7. CIPRALEX [Concomitant]
     Active Substance: ESCITALOPRAM OXALATE
     Indication: DEPRESSION
     Route: 048
  8. REMERON [Concomitant]
     Active Substance: MIRTAZAPINE
     Indication: DEPRESSION
     Route: 048
  9. SINEMET [Concomitant]
     Active Substance: CARBIDOPA\LEVODOPA
     Indication: PARKINSON^S DISEASE
     Route: 048

REACTIONS (9)
  - Mobility decreased [Recovered/Resolved]
  - Mobility decreased [Not Recovered/Not Resolved]
  - Device dislocation [Unknown]
  - Musculoskeletal stiffness [Not Recovered/Not Resolved]
  - On and off phenomenon [Recovered/Resolved]
  - Device kink [Unknown]
  - Drug ineffective [Recovered/Resolved]
  - Fall [Recovered/Resolved]
  - Tremor [Not Recovered/Not Resolved]

NARRATIVE: CASE EVENT DATE: 201903
